FAERS Safety Report 12814945 (Version 1)
Quarter: 2016Q4

REPORT INFORMATION
  Report Type: Spontaneous
  Country: CA (occurrence: CA)
  Receive Date: 20161005
  Receipt Date: 20161005
  Transmission Date: 20170207
  Serious: Yes (Other)
  Sender: FDA-Public Use
  Company Number: CA-TEVA-697613ACC

PATIENT
  Age: 49 Year
  Sex: Female

DRUGS (6)
  1. TEVA-AMOXICILLIN [Suspect]
     Active Substance: AMOXICILLIN
     Indication: NASOPHARYNGITIS
  2. PANTOPRAZOLE [Concomitant]
     Active Substance: PANTOPRAZOLE SODIUM
     Dosage: 80 MILLIGRAM DAILY;
  3. TEVA-AMOXICILLIN [Suspect]
     Active Substance: AMOXICILLIN
     Indication: LOWER RESPIRATORY TRACT INFECTION
     Dosage: 1500 MILLIGRAM DAILY;
     Route: 048
     Dates: start: 20160913, end: 20160922
  4. IBUPROFEN. [Concomitant]
     Active Substance: IBUPROFEN
  5. CITALOPRAM [Concomitant]
     Active Substance: CITALOPRAM HYDROBROMIDE
     Dosage: 30 MILLIGRAM DAILY;
  6. DYAZIDE [Concomitant]
     Active Substance: HYDROCHLOROTHIAZIDE\TRIAMTERENE
     Dosage: 1 DOSAGE FORM=50MG TRIAMTERENE+ 25MG HYDROCHLOROTHIAZIDE; 2-3 TIMES PER WEEK

REACTIONS (1)
  - Coeliac disease [Recovering/Resolving]

NARRATIVE: CASE EVENT DATE: 20160920
